FAERS Safety Report 6070529-1 (Version None)
Quarter: 2009Q1

REPORT INFORMATION
  Report Type: 
  Country: None (occurrence: None)
  Receive Date: 20090209
  Receipt Date: 20090127
  Transmission Date: 20090719
  Serious: Yes (Disabling)
  Sender: FDA-Public Use
  Company Number: PT-ROCHE-611003

PATIENT
  Sex: Female

DRUGS (2)
  1. BONIVA [Suspect]
     Indication: OSTEOPOROSIS
     Route: 048
  2. OVESTIN [Concomitant]
     Route: 067

REACTIONS (5)
  - BURNING SENSATION [None]
  - DYSURIA [None]
  - INCORRECT ROUTE OF DRUG ADMINISTRATION [None]
  - MUCOSAL EROSION [None]
  - PELVIC PAIN [None]
